FAERS Safety Report 21411123 (Version 5)
Quarter: 2025Q4

REPORT INFORMATION
  Report Type: Spontaneous
  Country: US (occurrence: US)
  Receive Date: 20221005
  Receipt Date: 20251126
  Transmission Date: 20260118
  Serious: Yes (Hospitalization, Other)
  Sender: PFIZER
  Company Number: US-PFIZER INC-PV202200072401

PATIENT
  Age: 3 Year
  Sex: Female

DRUGS (2)
  1. SOMATROPIN [Suspect]
     Active Substance: SOMATROPIN
     Indication: Hypopituitarism
     Dosage: 0.2 MG, DAILY
     Route: 058
  2. SOMATROPIN [Suspect]
     Active Substance: SOMATROPIN
     Indication: Growth hormone deficiency

REACTIONS (5)
  - Abdominal distension [Unknown]
  - Diaphragmatic spasm [Unknown]
  - Dyspnoea [Unknown]
  - Abdominal operation [Unknown]
  - Scar [Unknown]

NARRATIVE: CASE EVENT DATE: 20250101
